FAERS Safety Report 25003018 (Version 2)
Quarter: 2025Q3

REPORT INFORMATION
  Report Type: Spontaneous
  Country: EU (occurrence: None)
  Receive Date: 20250224
  Receipt Date: 20250816
  Transmission Date: 20251021
  Serious: No
  Sender: ALEXION PHARMACEUTICALS
  Company Number: EU-AstraZeneca-2013SE69958

PATIENT
  Age: 64 Year
  Sex: Female

DRUGS (1)
  1. ESOMEPRAZOLE MAGNESIUM [Suspect]
     Active Substance: ESOMEPRAZOLE MAGNESIUM
     Dosage: GENERIC

REACTIONS (1)
  - Tinnitus [Recovered/Resolved]
